FAERS Safety Report 5122005-8 (Version None)
Quarter: 2006Q4

REPORT INFORMATION
  Report Type: 
  Country: None (occurrence: None)
  Receive Date: 20061004
  Receipt Date: 20061004
  Transmission Date: 20070319
  Serious: Yes (Other)
  Sender: FDA-Public Use
  Company Number: None

PATIENT
  Age: 88 Year
  Sex: Male
  Weight: 52.4 kg

DRUGS (7)
  1. HEPARIN [Suspect]
     Dosage: INITIATION OF HD CATHETER INTRAVEN
     Route: 042
     Dates: start: 20060623, end: 20060623
  2. ACETAMINOPHEN AND CODEINE PHOSPHATE [Concomitant]
  3. NEPHROCAPS [Concomitant]
  4. ZOCOR [Concomitant]
  5. HEPARIN NA, PORK INJ [Concomitant]
  6. IRON POLYSACCHARIDE (NIFEREX) [Concomitant]
  7. CALCIUM ACETATE [Concomitant]

REACTIONS (1)
  - PROTHROMBIN TIME PROLONGED [None]
